FAERS Safety Report 4398370-6 (Version None)
Quarter: 2004Q3

REPORT INFORMATION
  Report Type: 
  Country: None (occurrence: None)
  Receive Date: 20040713
  Receipt Date: 20040701
  Transmission Date: 20050211
  Serious: Yes (Other)
  Sender: FDA-Public Use
  Company Number: JP-JNJFOC-20040605695

PATIENT
  Age: 67 Year
  Sex: Male

DRUGS (6)
  1. ITRACONAZOLE [Suspect]
     Indication: ONYCHOMYCOSIS
     Dosage: 100 MG, IN 1 DAY, ORAL
     Route: 048
     Dates: start: 20040603, end: 20040614
  2. PRAVASTATIN [Suspect]
     Indication: DRUG USE FOR UNKNOWN INDICATION
  3. NORVASC (UNSPECIFIED) (AMLODIPINE BESILATE) [Concomitant]
  4. B-BLOCKING AGENTS (BETA BLOCKING AGENTS) UNSPECIFIED [Concomitant]
  5. ANTIARRHYTHMIC AGENTS (ANTIARRHYTHMICS, CALASS I AND III) UNSPECIFIED [Concomitant]
  6. RYTHMODAN (DISOPYRAMIDE) UNSPECIFIED [Concomitant]

REACTIONS (6)
  - BLOOD GLUCOSE INCREASED [None]
  - CONDITION AGGRAVATED [None]
  - CREATININE RENAL CLEARANCE INCREASED [None]
  - DRUG INTERACTION [None]
  - HYPERTENSION [None]
  - LOSS OF CONSCIOUSNESS [None]
